FAERS Safety Report 25994908 (Version 1)
Quarter: 2025Q4

REPORT INFORMATION
  Report Type: Report from Study
  Country: US (occurrence: US)
  Receive Date: 20251104
  Receipt Date: 20251104
  Transmission Date: 20260117
  Serious: Yes (Hospitalization)
  Sender: ABBVIE
  Company Number: US-ABBVIE-6520836

PATIENT
  Age: 67 Year
  Sex: Female
  Weight: 140.61 kg

DRUGS (2)
  1. HUMIRA [Suspect]
     Active Substance: ADALIMUMAB
     Indication: Rheumatoid arthritis
     Dosage: SOLUTION FOR INJECTION IN PRE-FILLED PEN
     Route: 058
     Dates: start: 20230301, end: 20240301
  2. HUMIRA [Suspect]
     Active Substance: ADALIMUMAB
     Indication: Psoriatic arthropathy

REACTIONS (15)
  - Procedural haemorrhage [Recovered/Resolved]
  - Immunodeficiency [Recovered/Resolved]
  - Nasopharyngitis [Recovered/Resolved]
  - Lipoma [Recovered/Resolved]
  - Musculoskeletal disorder [Recovered/Resolved]
  - Pain in extremity [Recovered/Resolved]
  - Hypoaesthesia [Recovered/Resolved]
  - Poor peripheral circulation [Unknown]
  - Infection susceptibility increased [Recovered/Resolved]
  - Blood potassium decreased [Recovered/Resolved]
  - Influenza [Recovered/Resolved]
  - Blood sodium decreased [Recovered/Resolved]
  - Nerve compression [Unknown]
  - Immunodeficiency [Unknown]
  - Upper respiratory tract infection [Recovered/Resolved]

NARRATIVE: CASE EVENT DATE: 20230301
